FAERS Safety Report 4417070-7 (Version None)
Quarter: 2004Q2

REPORT INFORMATION
  Report Type: 
  Country: None (occurrence: None)
  Receive Date: 20040629
  Receipt Date: 20031120
  Transmission Date: 20050107
  Serious: No
  Sender: FDA-Public Use
  Company Number: US058367

PATIENT
  Sex: Female

DRUGS (2)
  1. ARANESP [Suspect]
     Indication: RENAL FAILURE CHRONIC
     Dosage: 100 MCG, WEEKLY
     Dates: start: 20030601, end: 20031101
  2. IRON [Concomitant]

REACTIONS (1)
  - THERAPEUTIC RESPONSE DECREASED [None]
